FAERS Safety Report 7035872-8 (Version None)
Quarter: 2010Q4

REPORT INFORMATION
  Report Type: 
  Country: None (occurrence: None)
  Receive Date: 20101008
  Receipt Date: 20100928
  Transmission Date: 20110411
  Serious: Yes (Hospitalization)
  Sender: FDA-Public Use
  Company Number: GXKR2010GB11013

PATIENT
  Age: 72 Year
  Sex: Male
  Weight: 96 kg

DRUGS (6)
  1. ACETAMINOPHEN W/ CODEINE [Suspect]
     Indication: OSTEOARTHRITIS
     Dosage: 2 DF, UNK
     Route: 048
     Dates: start: 20100602
  2. ACETYLSALICYLIC ACID SRT [Concomitant]
  3. BISOPROLOL [Concomitant]
     Indication: MYOCARDIAL ISCHAEMIA
     Dosage: 5 MG, UNK
     Route: 048
     Dates: start: 20080829
  4. CANDESARTAN CILEXETIL [Concomitant]
     Dosage: 4 MG, UNK
  5. NITROGLYCERIN [Concomitant]
  6. SIMVASTATIN [Concomitant]
     Dosage: 80 MG, UNK

REACTIONS (2)
  - BRADYCARDIA [None]
  - VENTRICULAR EXTRASYSTOLES [None]
